FAERS Safety Report 24106665 (Version 1)
Quarter: 2024Q3

REPORT INFORMATION
  Report Type: Spontaneous
  Country: CO (occurrence: CO)
  Receive Date: 20240717
  Receipt Date: 20240717
  Transmission Date: 20241016
  Serious: Yes (Other)
  Sender: ELI LILLY AND CO
  Company Number: CO-ELI_LILLY_AND_COMPANY-CO202407007227

PATIENT
  Sex: Female

DRUGS (3)
  1. ABEMACICLIB [Suspect]
     Active Substance: ABEMACICLIB
     Indication: Metastases to breast
     Dosage: 150 MG, BID
     Route: 048
     Dates: start: 202303
  2. ABEMACICLIB [Suspect]
     Active Substance: ABEMACICLIB
     Dosage: 100 MG, BID
     Route: 048
     Dates: start: 202406
  3. LETROZOLE [Concomitant]
     Active Substance: LETROZOLE
     Indication: Metastases to breast
     Dosage: 2.5 MG, UNKNOWN
     Route: 065
     Dates: start: 202303

REACTIONS (3)
  - Intestinal obstruction [Unknown]
  - Neutropenia [Unknown]
  - Diarrhoea [Unknown]

NARRATIVE: CASE EVENT DATE: 20230501
